FAERS Safety Report 15465073 (Version 1)
Quarter: 2018Q4

REPORT INFORMATION
  Report Type: Spontaneous
  Country: SE (occurrence: SE)
  Receive Date: 20181004
  Receipt Date: 20181004
  Transmission Date: 20190204
  Serious: Yes (Death, Life-Threatening, Other)
  Sender: FDA-Public Use
  Company Number: SE-NAPPMUNDI-USA-2017-0139382

PATIENT
  Age: 32 Year
  Sex: Male

DRUGS (2)
  1. AMPHETAMINE [Suspect]
     Active Substance: AMPHETAMINE
     Indication: PRODUCT USED FOR UNKNOWN INDICATION
     Dosage: UNK
     Route: 065
  2. OXYCODONE HYDROCHLORIDE (SIMILAR TO NDA 22-272) [Suspect]
     Active Substance: OXYCODONE HYDROCHLORIDE
     Indication: PRODUCT USED FOR UNKNOWN INDICATION
     Dosage: SIX EMPTY PACKAGES
     Route: 065

REACTIONS (9)
  - Substance abuse [Fatal]
  - Pulmonary oedema [Fatal]
  - Myocardial oedema [Fatal]
  - Aspiration [Fatal]
  - Brain oedema [Fatal]
  - Visceral congestion [Fatal]
  - Pneumonia [Fatal]
  - Toxicity to various agents [Fatal]
  - Heart injury [Fatal]
